FAERS Safety Report 4679412-7 (Version None)
Quarter: 2005Q2

REPORT INFORMATION
  Report Type: 
  Country: None (occurrence: None)
  Receive Date: 20050602
  Receipt Date: 20050524
  Transmission Date: 20051028
  Serious: Yes (Other)
  Sender: FDA-Public Use
  Company Number: PHHO2005JP08418

PATIENT
  Age: 49 Year
  Sex: Female

DRUGS (8)
  1. DIOVAN [Suspect]
     Indication: HYPERTENSION
     Dosage: 40 MG, QD
     Route: 048
     Dates: start: 20030422, end: 20040130
  2. DIOVAN [Suspect]
     Dosage: 20 MG, QD
     Route: 048
     Dates: start: 20040131, end: 20040702
  3. ALFAROL [Suspect]
     Indication: HYPERTHYROIDISM
     Dosage: 0.5 UG, QD
     Route: 048
     Dates: start: 20030422, end: 20031017
  4. ALFAROL [Suspect]
     Dosage: 0.25 UG, QD
     Route: 048
     Dates: start: 20031018, end: 20040702
  5. PREDNISOLONE [Suspect]
     Indication: GLOMERULONEPHRITIS PROLIFERATIVE
     Dosage: 30 MG, QD
     Route: 048
     Dates: start: 20030422, end: 20040603
  6. ALOSITOL [Suspect]
     Indication: HYPERURICAEMIA
     Dosage: 100 MG, QD
     Route: 048
     Dates: start: 20030912, end: 20040702
  7. PERSANTIN-L [Concomitant]
     Indication: GLOMERULONEPHRITIS PROLIFERATIVE
     Dosage: 300 MG, UNK
     Route: 048
     Dates: start: 20030422
  8. EPADEL [Concomitant]
     Dosage: 1.8 G, UNK
     Route: 048

REACTIONS (2)
  - HEPATIC FUNCTION ABNORMAL [None]
  - HEPATIC STEATOSIS [None]
